FAERS Safety Report 9791326 (Version 3)
Quarter: 2019Q1

REPORT INFORMATION
  Report Type: Spontaneous
  Country: FR (occurrence: FR)
  Receive Date: 20140101
  Receipt Date: 20190221
  Transmission Date: 20190418
  Serious: Yes (Other)
  Sender: FDA-Public Use
  Company Number: FR-AMGEN-FRASP2013090922

PATIENT
  Age: 71 Year
  Sex: Male
  Weight: 100 kg

DRUGS (2)
  1. NPLATE [Suspect]
     Active Substance: ROMIPLOSTIM
     Indication: THROMBOCYTOPENIC PURPURA
     Dosage: 3 MUG/KG, UNK
     Route: 058
  2. NPLATE [Suspect]
     Active Substance: ROMIPLOSTIM
     Indication: IMMUNE THROMBOCYTOPENIC PURPURA
     Dosage: 300 MUG, QWK
     Route: 065

REACTIONS (2)
  - Muscle twitching [Not Recovered/Not Resolved]
  - Clonus [Recovered/Resolved]

NARRATIVE: CASE EVENT DATE: 20131211
